FAERS Safety Report 19545758 (Version 2)
Quarter: 2021Q3

REPORT INFORMATION
  Report Type: Spontaneous
  Country: JP (occurrence: JP)
  Receive Date: 20210714
  Receipt Date: 20210802
  Transmission Date: 20211014
  Serious: Yes (Other)
  Sender: FDA-Public Use
  Company Number: NVSJ2021JP010453

PATIENT
  Age: 71 Year
  Sex: Female

DRUGS (3)
  1. BEOVU [Suspect]
     Active Substance: BROLUCIZUMAB-DBLL
     Dosage: 6 MG
     Route: 031
     Dates: start: 20201216, end: 20201216
  2. BEOVU [Suspect]
     Active Substance: BROLUCIZUMAB-DBLL
     Dosage: 6 MG
     Route: 031
     Dates: start: 20210518, end: 20210518
  3. BEOVU [Suspect]
     Active Substance: BROLUCIZUMAB-DBLL
     Indication: AGE-RELATED MACULAR DEGENERATION
     Dosage: 6 MG
     Route: 031
     Dates: start: 20200729, end: 20200729

REACTIONS (5)
  - Age-related macular degeneration [Unknown]
  - Chorioretinal atrophy [Recovered/Resolved]
  - Visual acuity reduced [Recovered/Resolved]
  - Blindness transient [Unknown]
  - Disease progression [Unknown]

NARRATIVE: CASE EVENT DATE: 20200729
